FAERS Safety Report 7763273-3 (Version None)
Quarter: 2011Q3

REPORT INFORMATION
  Report Type: 
  Country: None (occurrence: None)
  Receive Date: 20110920
  Receipt Date: 20110912
  Transmission Date: 20111222
  Serious: Yes (Hospitalization)
  Sender: FDA-Public Use
  Company Number: BR-MEDIMMUNE-MEDI-0013223

PATIENT
  Sex: Male
  Weight: 7.17 kg

DRUGS (2)
  1. SYNAGIS [Suspect]
     Indication: CARDIAC DISORDER
     Route: 030
     Dates: start: 20100501, end: 20100818
  2. SYNAGIS [Suspect]

REACTIONS (8)
  - INFLUENZA [None]
  - CYST [None]
  - BRONCHITIS [None]
  - FATIGUE [None]
  - CEREBRAL ATROPHY [None]
  - LOWER RESPIRATORY TRACT INFECTION [None]
  - PNEUMONIA [None]
  - RHINORRHOEA [None]
